FAERS Safety Report 8252107-9 (Version None)
Quarter: 2012Q2

REPORT INFORMATION
  Report Type: 
  Country: None (occurrence: None)
  Receive Date: 20120402
  Receipt Date: 20110321
  Transmission Date: 20120825
  Serious: No
  Sender: FDA-Public Use
  Company Number: US-ABBOTT-11P-163-0804326-00

PATIENT
  Sex: Male
  Weight: 83.181 kg

DRUGS (2)
  1. SULFUR AND TRICLOSAN [Suspect]
     Indication: ACNE
     Dosage: DAILY DOSE:  UNKNOWN
     Route: 061
  2. TESTOSTERONE [Suspect]
     Indication: BLOOD TESTOSTERONE DECREASED
     Dosage: DAILY DOSE: 5 GRAM(S)
     Route: 062

REACTIONS (2)
  - DRUG INEFFECTIVE [None]
  - ACNE [None]
